FAERS Safety Report 7950074-6 (Version None)
Quarter: 2011Q4

REPORT INFORMATION
  Report Type: 
  Country: None (occurrence: None)
  Receive Date: 20111130
  Receipt Date: 20111128
  Transmission Date: 20120403
  Serious: Yes (Death, Hospitalization)
  Sender: FDA-Public Use
  Company Number: US-BAYER-2011-100397

PATIENT
  Age: 59 Year
  Sex: Female

DRUGS (1)
  1. NEXAVAR [Suspect]
     Indication: BLADDER CANCER
     Dosage: 200 MG, BID
     Route: 048
     Dates: start: 20110920, end: 20111001

REACTIONS (5)
  - DIZZINESS [None]
  - OEDEMA PERIPHERAL [None]
  - PLEURAL EFFUSION [None]
  - DEATH [None]
  - BLOOD PRESSURE INCREASED [None]
